FAERS Safety Report 6024172-0 (Version None)
Quarter: 2008Q4

REPORT INFORMATION
  Report Type: 
  Country: None (occurrence: None)
  Receive Date: 20081224
  Receipt Date: 20081215
  Transmission Date: 20090506
  Serious: Yes (Death, Hospitalization)
  Sender: FDA-Public Use
  Company Number: TCI2008A06252

PATIENT
  Age: 89 Year
  Sex: Female

DRUGS (4)
  1. LANSOPRAZOLE [Suspect]
     Dosage: PER ORAL
     Route: 048
  2. ALLOPURINOL [Suspect]
     Dosage: PER ORAL
     Route: 048
  3. THEOPHYLLINE (PREPARATION FOR ORAL USE (NOS)) [Concomitant]
  4. MARZULENE (SODIUM GUALENATE) (PREPARATION FOR ORAL USE (NOS)) [Concomitant]

REACTIONS (28)
  - ANOREXIA [None]
  - ASPARTATE AMINOTRANSFERASE INCREASED [None]
  - BACTERIA URINE IDENTIFIED [None]
  - BLOOD ALBUMIN DECREASED [None]
  - BLOOD BETA-D-GLUCAN INCREASED [None]
  - BLOOD LACTATE DEHYDROGENASE INCREASED [None]
  - BLOOD URINE PRESENT [None]
  - CYTOMEGALOVIRUS ANTIBODY POSITIVE [None]
  - DERMATITIS EXFOLIATIVE [None]
  - DRUG RASH WITH EOSINOPHILIA AND SYSTEMIC SYMPTOMS [None]
  - DYSPNOEA [None]
  - ERYTHEMA MULTIFORME [None]
  - HUMAN HERPESVIRUS 6 INFECTION [None]
  - LOBAR PNEUMONIA [None]
  - LYMPHADENOPATHY [None]
  - LYMPHOCYTE MORPHOLOGY ABNORMAL [None]
  - NO THERAPEUTIC RESPONSE [None]
  - PIGMENTATION DISORDER [None]
  - PLEURAL EFFUSION [None]
  - PNEUMONIA BACTERIAL [None]
  - PROTEIN TOTAL DECREASED [None]
  - PROTEIN URINE PRESENT [None]
  - PULMONARY MYCOSIS [None]
  - PURPURA [None]
  - RENAL IMPAIRMENT [None]
  - SCAR [None]
  - SKIN EXFOLIATION [None]
  - WHITE BLOOD CELL COUNT INCREASED [None]
